FAERS Safety Report 7605316-3 (Version None)
Quarter: 2011Q3

REPORT INFORMATION
  Report Type: 
  Country: None (occurrence: None)
  Receive Date: 20110713
  Receipt Date: 20110630
  Transmission Date: 20111222
  Serious: Yes (Other)
  Sender: FDA-Public Use
  Company Number: US-JNJFOC-20110701450

PATIENT
  Sex: Female
  Weight: 90.72 kg

DRUGS (3)
  1. REMICADE [Suspect]
     Indication: CROHN'S DISEASE
     Route: 042
     Dates: start: 20060901
  2. ESTRADIOL, NORETHINDRONE ACETATE [Concomitant]
     Indication: MENOPAUSE
     Route: 048
  3. PENTASA [Concomitant]
     Indication: CROHN'S DISEASE
     Route: 048
     Dates: start: 20060101

REACTIONS (7)
  - DEPRESSION [None]
  - GASTROOESOPHAGEAL REFLUX DISEASE [None]
  - CROHN'S DISEASE [None]
  - HYPERTENSION [None]
  - SINUSITIS [None]
  - ROAD TRAFFIC ACCIDENT [None]
  - INCORRECT STORAGE OF DRUG [None]
